FAERS Safety Report 16696381 (Version 2)
Quarter: 2019Q3

REPORT INFORMATION
  Report Type: Spontaneous
  Country: CH (occurrence: CH)
  Receive Date: 20190813
  Receipt Date: 20190821
  Transmission Date: 20191004
  Serious: Yes (Death, Hospitalization, Other)
  Sender: FDA-Public Use
  Company Number: CH-BRISTOL-MYERS SQUIBB COMPANY-BMS-2019-079422

PATIENT
  Age: 84 Year
  Sex: Female
  Weight: 65 kg

DRUGS (2)
  1. YERVOY [Suspect]
     Active Substance: IPILIMUMAB
     Indication: CHOROID MELANOMA
     Dosage: 200 MILLIGRAM, AS NECESSARY
     Route: 065
     Dates: start: 20190502
  2. OPDIVO [Suspect]
     Active Substance: NIVOLUMAB
     Indication: CHOROID MELANOMA
     Dosage: 70 MILLIGRAM, AS NECESSARY
     Route: 065
     Dates: start: 20190501

REACTIONS (6)
  - Myasthenia gravis [Recovering/Resolving]
  - Encephalitis [Unknown]
  - Coma [Unknown]
  - General physical health deterioration [Unknown]
  - Thyroiditis [Fatal]
  - Drug-induced liver injury [Fatal]

NARRATIVE: CASE EVENT DATE: 20190527
